FAERS Safety Report 9343300 (Version 2)
Quarter: 2013Q3

REPORT INFORMATION
  Report Type: Report from Study
  Country: US (occurrence: US)
  Receive Date: 20130612
  Receipt Date: 20130712
  Transmission Date: 20140515
  Serious: Yes (Death)
  Sender: FDA-Public Use
  Company Number: US-ROCHE-1235789

PATIENT
  Age: 56 Year
  Sex: Male

DRUGS (9)
  1. RITUXAN [Suspect]
     Indication: CHRONIC LYMPHOCYTIC LEUKAEMIA
     Route: 065
  2. ROCEPHIN [Suspect]
     Indication: PNEUMONIA
     Route: 042
  3. ATIVAN [Concomitant]
     Route: 065
     Dates: start: 20130406
  4. ATIVAN [Concomitant]
     Route: 065
  5. CALCIUM GLUCONATE [Concomitant]
     Route: 042
  6. OXYCODONE/APAP [Concomitant]
     Dosage: 10/325 MG
     Route: 065
  7. ALLOPURINOL [Concomitant]
     Indication: HYPERURICAEMIA
     Route: 065
  8. LASIX [Concomitant]
     Route: 042
  9. MORPHINE [Concomitant]
     Indication: DYSPNOEA
     Route: 065

REACTIONS (1)
  - Death [Fatal]
